FAERS Safety Report 5172444-4 (Version None)
Quarter: 2006Q4

REPORT INFORMATION
  Report Type: 
  Country: None (occurrence: None)
  Receive Date: 20061213
  Receipt Date: 20060831
  Transmission Date: 20070319
  Serious: No
  Sender: FDA-Public Use
  Company Number: US-AMGEN-KDL192100

PATIENT
  Sex: Female

DRUGS (7)
  1. ENBREL [Suspect]
     Indication: RHEUMATOID ARTHRITIS
     Route: 058
     Dates: start: 20060301
  2. METHOTREXATE [Concomitant]
     Dates: start: 20041012
  3. FOLIC ACID [Concomitant]
     Dates: start: 20041012
  4. PREDNISONE TAB [Concomitant]
     Dates: start: 20041012
  5. ARTHROTEC [Concomitant]
     Dates: end: 20041108
  6. FOSAMAX [Concomitant]
     Dates: start: 20050418
  7. NAPROXEN [Concomitant]
     Dates: start: 20050927

REACTIONS (1)
  - SKIN CANCER [None]
